FAERS Safety Report 7061489-5 (Version None)
Quarter: 2010Q4

REPORT INFORMATION
  Report Type: 
  Country: None (occurrence: None)
  Receive Date: 20101026
  Receipt Date: 20101014
  Transmission Date: 20110411
  Serious: Yes (Other)
  Sender: FDA-Public Use
  Company Number: IT-ACTELION-A-CH2008-21687

PATIENT
  Sex: Male
  Weight: 85 kg

DRUGS (10)
  1. MIGLUSTAT CAPSULE 100 MG EU [Suspect]
     Indication: LIPIDOSIS
     Dosage: 300 MG, QD
     Route: 048
     Dates: start: 20080616
  2. MIGLUSTAT CAPSULE 100 MG EU [Suspect]
     Dosage: 500 MG, QD
     Route: 048
     Dates: start: 20061228, end: 20080615
  3. NEURONTIN [Concomitant]
  4. FOLINA [Concomitant]
  5. KCL-RETARD [Concomitant]
  6. TRIATEC [Concomitant]
  7. NEXIUM [Concomitant]
  8. TANSULOSINA [Concomitant]
  9. TRAMADOL HCL [Concomitant]
  10. EVION [Concomitant]

REACTIONS (4)
  - CONDITION AGGRAVATED [None]
  - DEMYELINATION [None]
  - ELECTRONEUROGRAPHY [None]
  - MUSCULAR WEAKNESS [None]
